FAERS Safety Report 11142548 (Version 1)
Quarter: 2015Q2

REPORT INFORMATION
  Report Type: Spontaneous
  Country: US (occurrence: None)
  Receive Date: 20150526
  Receipt Date: 20150526
  Transmission Date: 20150821
  Serious: No
  Sender: FDA-Public Use
  Company Number: None

PATIENT
  Age: 36 Year
  Sex: Female
  Weight: 68.04 kg

DRUGS (2)
  1. BACTRIM DS [Suspect]
     Active Substance: SULFAMETHOXAZOLE\TRIMETHOPRIM
     Indication: URINARY TRACT INFECTION
     Route: 048
     Dates: start: 20150301, end: 20150525
  2. MULTIVITAMIN [Concomitant]
     Active Substance: VITAMINS

REACTIONS (14)
  - Burning sensation [None]
  - Vulvovaginal burning sensation [None]
  - Vulvovaginal pruritus [None]
  - Ocular hyperaemia [None]
  - Eye pain [None]
  - Dyspepsia [None]
  - Oropharyngeal pain [None]
  - Conjunctivitis [None]
  - Chills [None]
  - Hypersensitivity [None]
  - Flushing [None]
  - Pyrexia [None]
  - Cough [None]
  - Dry eye [None]

NARRATIVE: CASE EVENT DATE: 20150524
